FAERS Safety Report 9408334 (Version 1)
Quarter: 2013Q3

REPORT INFORMATION
  Report Type: Spontaneous
  Country: GB (occurrence: GB)
  Receive Date: 20130718
  Receipt Date: 20130718
  Transmission Date: 20140515
  Serious: Yes (Other)
  Sender: FDA-Public Use
  Company Number: GB-GLAXOSMITHKLINE-B0908170A

PATIENT
  Age: 67 Year
  Sex: Male

DRUGS (3)
  1. ROPINIROLE HYDROCHLORIDE [Suspect]
     Indication: PARKINSON^S DISEASE
     Dosage: 4MG PER DAY
     Route: 048
     Dates: start: 2012
  2. CO-CARELDOPA [Concomitant]
  3. SELEGILINE [Concomitant]

REACTIONS (3)
  - Parkinsonian crisis [Recovered/Resolved]
  - Hypotension [Unknown]
  - Withdrawal syndrome [Recovered/Resolved]
